FAERS Safety Report 8951093 (Version 2)
Quarter: 2013Q3

REPORT INFORMATION
  Report Type: Spontaneous
  Country: US (occurrence: None)
  Receive Date: 20121129
  Receipt Date: 20130916
  Transmission Date: 20140515
  Serious: Yes (Other)
  Sender: FDA-Public Use
  Company Number: JPI-P-026428

PATIENT
  Age: 42 Year
  Sex: Female
  Weight: 53.07 kg

DRUGS (1)
  1. XYREM [Suspect]
     Indication: CATAPLEXY
     Route: 048
     Dates: start: 20101116

REACTIONS (14)
  - Feeling drunk [None]
  - Gait disturbance [None]
  - Fall [None]
  - Head injury [None]
  - Concussion [None]
  - Nausea [None]
  - Poor quality sleep [None]
  - Insomnia [None]
  - Dizziness [None]
  - Headache [None]
  - Appetite disorder [None]
  - Weight decreased [None]
  - Acne [None]
  - Middle insomnia [None]
